FAERS Safety Report 9400010 (Version 8)
Quarter: 2014Q3

REPORT INFORMATION
  Report Type: Spontaneous
  Country: US (occurrence: US)
  Receive Date: 20130715
  Receipt Date: 20140806
  Transmission Date: 20150326
  Serious: Yes (Death, Hospitalization, Disabling, Other)
  Sender: FDA-Public Use
  Company Number: US-ASTRAZENECA-2013SE52154

PATIENT
  Age: 58 Year
  Sex: Male

DRUGS (32)
  1. PROTONIX [Concomitant]
     Active Substance: PANTOPRAZOLE SODIUM
     Dates: start: 200912
  2. VITAMIN B 1 [Concomitant]
     Dates: start: 200912
  3. ASPIRIN/CHILDREN^S ASPIRIN [Concomitant]
     Dates: start: 20081206, end: 20081228
  4. BENAZEPRIL HCL [Concomitant]
     Active Substance: BENAZEPRIL HYDROCHLORIDE
     Dosage: 50 1 TABLET ORAL EVERYDAY DAILY
     Dates: start: 200812, end: 20090102
  5. SEROQUEL [Suspect]
     Active Substance: QUETIAPINE FUMARATE
     Route: 048
  6. SEROQUEL [Suspect]
     Active Substance: QUETIAPINE FUMARATE
     Dosage: 12.5 MG HALF TABLET ORAL EVERY MORNING DAILY
     Route: 048
     Dates: start: 20081220, end: 20081226
  7. SEROQUEL [Suspect]
     Active Substance: QUETIAPINE FUMARATE
     Route: 048
     Dates: start: 20081202
  8. SEROQUEL [Suspect]
     Active Substance: QUETIAPINE FUMARATE
     Route: 048
     Dates: start: 20081202
  9. PROTONIX [Concomitant]
     Active Substance: PANTOPRAZOLE SODIUM
     Route: 048
     Dates: start: 20081217, end: 20090102
  10. METOPROLOL/METOPROLOL TARTRATE [Concomitant]
     Dates: start: 20081206, end: 20090102
  11. METOPROLOL/METOPROLOL TARTRATE [Concomitant]
     Dates: start: 200912
  12. SENNA [Concomitant]
     Active Substance: SENNA LEAF\SENNOSIDES\SENNOSIDES A AND B
     Dosage: ONE TABLET DAILY
     Dates: start: 200912
  13. NEPHRON-FA [Concomitant]
     Dates: start: 20081202
  14. SEROQUEL [Suspect]
     Active Substance: QUETIAPINE FUMARATE
     Dosage: 50 MG 2 TABLET ORAL EVERYDAY AT 18 HOURS DAILY
     Route: 048
     Dates: start: 20081220, end: 20081226
  15. METANX [Concomitant]
     Active Substance: LEVOMEFOLATE CALCIUM\METHYLCOBALAMIN\PYRIDOXAL PHOSPHATE ANHYDROUS
     Dosage: ONE TABLET DAILY
     Dates: start: 200912
  16. SEROQUEL [Suspect]
     Active Substance: QUETIAPINE FUMARATE
     Route: 048
  17. NORVASC [Concomitant]
     Active Substance: AMLODIPINE BESYLATE
     Route: 048
     Dates: start: 20081208, end: 20081228
  18. NORVASC [Concomitant]
     Active Substance: AMLODIPINE BESYLATE
     Route: 048
     Dates: start: 200912
  19. PHOSLO [Concomitant]
     Active Substance: CALCIUM ACETATE
     Route: 048
     Dates: start: 20081217, end: 20090102
  20. MORPHINE [Concomitant]
     Active Substance: MORPHINE
     Dates: start: 200812
  21. HALOPERIDOL. [Concomitant]
     Active Substance: HALOPERIDOL
     Dates: start: 20081009
  22. DEPAKOTE ER [Concomitant]
     Active Substance: DIVALPROEX SODIUM
     Dosage: 1000 MG 2 TABLET CR ORAL 2 TIMES A DAY DAILY
     Route: 048
     Dates: start: 20081220, end: 20090102
  23. PHOSLO [Concomitant]
     Active Substance: CALCIUM ACETATE
     Dosage: THREE WITH MEALS
  24. VITAMIN B 1 [Concomitant]
     Route: 048
     Dates: start: 20081217, end: 20090102
  25. ASPIRIN/CHILDREN^S ASPIRIN [Concomitant]
     Dates: start: 200812
  26. BENAZEPRIL HCL [Concomitant]
     Active Substance: BENAZEPRIL HYDROCHLORIDE
     Dates: start: 200812
  27. PEPCID [Concomitant]
     Active Substance: FAMOTIDINE
     Dates: start: 200812
  28. PEPCID [Concomitant]
     Active Substance: FAMOTIDINE
     Route: 048
     Dates: start: 20081208, end: 20090102
  29. DOXEPIN [Concomitant]
     Active Substance: DOXEPIN
     Dates: start: 200912
  30. VITAMIN B COMPLEX [Concomitant]
     Active Substance: CYANOCOBALAMIN\DEXPANTHENOL\NIACINAMIDE\PYRIDOXINE HYDROCHLORIDE\RIBOFLAVIN 5^-PHOSPHATE SODIUM\THIAMINE HYDROCHLORIDE\VITAMIN B COMPLEX
     Dosage: ONE TABLET DAILY
     Dates: start: 200812
  31. METOPROLOL/METOPROLOL TARTRATE [Concomitant]
     Dates: start: 200812
  32. LORAZEPAM. [Concomitant]
     Active Substance: LORAZEPAM
     Indication: RESTLESSNESS
     Dates: start: 20081202

REACTIONS (15)
  - Malaise [Fatal]
  - Memory impairment [Unknown]
  - Depression [Unknown]
  - Abdominal pain [Unknown]
  - Agitation [Unknown]
  - Anxiety [Unknown]
  - Renal disorder [Unknown]
  - Convulsion [Unknown]
  - Emotional distress [Unknown]
  - Mental disorder [Unknown]
  - Renal failure chronic [Unknown]
  - Mental impairment [Unknown]
  - Executive dysfunction [Unknown]
  - Psychological trauma [Unknown]
  - Injury [Fatal]

NARRATIVE: CASE EVENT DATE: 20060711
